FAERS Safety Report 7335868-2 (Version None)
Quarter: 2011Q1

REPORT INFORMATION
  Report Type: 
  Country: None (occurrence: None)
  Receive Date: 20110301
  Receipt Date: 20110301
  Transmission Date: 20110831
  Serious: No
  Sender: FDA-Public Use
  Company Number: None

PATIENT
  Age: 63 Year
  Sex: Male
  Weight: 72 kg

DRUGS (2)
  1. RITONAVIR [Suspect]
     Indication: HIV INFECTION
     Dosage: 100 MG EVERY DAY PO
     Route: 048
     Dates: start: 20100311, end: 20110211
  2. MOMETASONE FUROATE [Suspect]
     Indication: CHRONIC OBSTRUCTIVE PULMONARY DISEASE
     Dosage: 220 MCG BID INHALE
     Route: 055
     Dates: start: 20081029

REACTIONS (2)
  - ADRENAL SUPPRESSION [None]
  - DRUG INTERACTION [None]
